FAERS Safety Report 9658044 (Version 1)
Quarter: 2013Q4

REPORT INFORMATION
  Report Type: Spontaneous
  Country: US (occurrence: US)
  Receive Date: 20131030
  Receipt Date: 20131030
  Transmission Date: 20140711
  Serious: Yes (Other)
  Sender: FDA-Public Use
  Company Number: US-PFIZER INC-2013303046

PATIENT
  Age: 4 Year
  Sex: Male

DRUGS (3)
  1. ROBITUSSIN [Suspect]
     Dosage: ONE TEASPOON
     Route: 048
  2. REXALL TM [Suspect]
     Indication: COUGH
     Dosage: UNK
     Route: 061
  3. REXALL TM [Suspect]
     Dosage: ONE TEASPOON
     Route: 048

REACTIONS (3)
  - Accidental exposure to product [Unknown]
  - Grand mal convulsion [Recovered/Resolved]
  - Vomiting [Recovered/Resolved]
